FAERS Safety Report 4417885-5 (Version None)
Quarter: 2004Q2

REPORT INFORMATION
  Report Type: 
  Country: None (occurrence: None)
  Receive Date: 20040621
  Receipt Date: 20040318
  Transmission Date: 20050107
  Serious: Yes (Other)
  Sender: FDA-Public Use
  Company Number: PHEH2004US02021

PATIENT
  Age: 72 Year
  Sex: Female
  Weight: 59.9 kg

DRUGS (1)
  1. ZOMETA [Suspect]
     Indication: OSTEOPOROSIS
     Dosage: 4 MG, EVERY 3 WEEKS; INTRAVENOUS
     Route: 042
     Dates: start: 20011226, end: 20040128

REACTIONS (4)
  - ANAEMIA [None]
  - IMPAIRED HEALING [None]
  - OSTEONECROSIS [None]
  - STOMATITIS [None]
